FAERS Safety Report 5448564-3 (Version None)
Quarter: 2007Q3

REPORT INFORMATION
  Report Type: 
  Country: None (occurrence: None)
  Receive Date: 20070911
  Receipt Date: 20070904
  Transmission Date: 20080115
  Serious: Yes (Other)
  Sender: FDA-Public Use
  Company Number: US-ELI_LILLY_AND_COMPANY-US200709000535

PATIENT
  Age: 66 Year
  Sex: Female
  Weight: 81.632 kg

DRUGS (4)
  1. BYETTA [Suspect]
     Indication: DIABETES MELLITUS
     Dosage: 5 UG, 2/D
     Route: 058
     Dates: start: 20050101, end: 20070101
  2. BYETTA [Suspect]
     Dosage: 10 UG, 2/D
     Route: 058
     Dates: start: 20070801
  3. AVANDIA [Concomitant]
     Dosage: UNK, UNKNOWN
     Dates: end: 20070501
  4. METFORMIN HCL [Concomitant]
     Dosage: 2500 MG, 2/D
     Route: 048

REACTIONS (10)
  - BLOOD GLUCOSE INCREASED [None]
  - FALL [None]
  - HUMERUS FRACTURE [None]
  - INCISION SITE PAIN [None]
  - INJECTION SITE BRUISING [None]
  - INJECTION SITE HAEMORRHAGE [None]
  - INJECTION SITE URTICARIA [None]
  - MUSCULAR WEAKNESS [None]
  - PAIN IN EXTREMITY [None]
  - STRESS [None]
